FAERS Safety Report 24742759 (Version 2)
Quarter: 2025Q1

REPORT INFORMATION
  Report Type: Spontaneous
  Country: US (occurrence: US)
  Receive Date: 20241217
  Receipt Date: 20250120
  Transmission Date: 20250408
  Serious: Yes (Other)
  Sender: ABBVIE
  Company Number: US-ABBVIE-6044267

PATIENT
  Age: 56 Year
  Sex: Female
  Weight: 77.1 kg

DRUGS (8)
  1. VENCLEXTA [Suspect]
     Active Substance: VENETOCLAX
     Indication: Chronic lymphocytic leukaemia
     Route: 048
     Dates: start: 20230611, end: 20240529
  2. VENCLEXTA [Suspect]
     Active Substance: VENETOCLAX
     Indication: Chronic lymphocytic leukaemia
     Route: 048
  3. VENCLEXTA [Suspect]
     Active Substance: VENETOCLAX
     Indication: Chronic lymphocytic leukaemia
     Route: 048
  4. RITUXIMAB [Suspect]
     Active Substance: RITUXIMAB
     Indication: Chronic lymphocytic leukaemia
     Route: 050
     Dates: start: 20230611, end: 20240229
  5. GAZYVA [Suspect]
     Active Substance: OBINUTUZUMAB
     Indication: Chronic lymphocytic leukaemia
     Route: 050
     Dates: start: 202108, end: 202201
  6. HYDROCHLOROTHIAZIDE [Suspect]
     Active Substance: HYDROCHLOROTHIAZIDE
     Indication: Hypertension
     Route: 065
  7. BENADRYL [Concomitant]
     Active Substance: DIPHENHYDRAMINE HYDROCHLORIDE
     Indication: Product used for unknown indication
  8. PREDNISONE [Concomitant]
     Active Substance: PREDNISONE
     Indication: Product used for unknown indication

REACTIONS (25)
  - Chronic lymphocytic leukaemia recurrent [Unknown]
  - Gait disturbance [Not Recovered/Not Resolved]
  - Headache [Recovering/Resolving]
  - Nausea [Recovering/Resolving]
  - Platelet count decreased [Unknown]
  - White blood cell count decreased [Unknown]
  - Hypertension [Recovering/Resolving]
  - Tremor [Not Recovered/Not Resolved]
  - Muscular weakness [Not Recovered/Not Resolved]
  - Arthritis [Not Recovered/Not Resolved]
  - Joint noise [Not Recovered/Not Resolved]
  - Extrasystoles [Recovered/Resolved]
  - Dyspnoea [Recovered/Resolved]
  - Skin exfoliation [Not Recovered/Not Resolved]
  - Limb injury [Not Recovered/Not Resolved]
  - Trichorrhexis [Not Recovered/Not Resolved]
  - Gastrooesophageal reflux disease [Recovered/Resolved]
  - Rash macular [Not Recovered/Not Resolved]
  - Weight decreased [Recovered/Resolved]
  - Burning sensation [Recovered/Resolved]
  - Appendicitis [Recovered/Resolved with Sequelae]
  - Hernia [Not Recovered/Not Resolved]
  - Off label use [Recovered/Resolved]
  - Myalgia [Unknown]
  - Bone pain [Unknown]

NARRATIVE: CASE EVENT DATE: 20210801
